FAERS Safety Report 8773565 (Version 1)
Quarter: 2012Q4

REPORT INFORMATION
  Report Type: 
  Country: FR (occurrence: FR)
  Receive Date: 20120907
  Receipt Date: 20120907
  Transmission Date: 20130627
  Serious: Yes (Other)
  Sender: FDA-Public Use
  Company Number: FR-GLAXOSMITHKLINE-B0828911A

PATIENT
  Sex: Female

DRUGS (2)
  1. TYVERB [Suspect]
     Indication: BREAST CANCER METASTATIC
     Dosage: 1250MG per day
     Route: 048
     Dates: start: 2009, end: 2009
  2. XELODA [Concomitant]
     Indication: BREAST CANCER METASTATIC
     Route: 048

REACTIONS (3)
  - Jaundice [Recovered/Resolved]
  - Liver function test abnormal [Recovered/Resolved]
  - Hyperbilirubinaemia [Recovered/Resolved]
